FAERS Safety Report 8580267-9 (Version None)
Quarter: 2012Q3

REPORT INFORMATION
  Report Type: 
  Country: None (occurrence: None)
  Receive Date: 20120808
  Receipt Date: 20120803
  Transmission Date: 20120928
  Serious: Yes (Hospitalization)
  Sender: FDA-Public Use
  Company Number: PHHO2012AR011095

PATIENT
  Sex: Male
  Weight: 77.3 kg

DRUGS (7)
  1. ASPIRIN [Concomitant]
     Indication: PROPHYLAXIS
     Dosage: 100 MG, DAILY
     Route: 048
     Dates: start: 20100601
  2. ENALAPRIL MALEATE [Suspect]
     Dosage: DOUBLE BLIND
     Route: 048
     Dates: start: 20111228
  3. SPIRONOLACTONE [Concomitant]
     Indication: HYPERTENSION
     Dosage: 2.5 MG/ DAILY
     Route: 048
     Dates: start: 20100601
  4. VALSARTAN [Suspect]
     Dosage: DOUBLE BLIND
     Route: 048
     Dates: start: 20111228
  5. BLINDED NO TREATMENT RECEIVED [Suspect]
     Dosage: DOUBLE BLIND
     Route: 048
     Dates: start: 20111228
  6. CARVEDILOL [Concomitant]
     Indication: HYPERTENSION
     Dosage: 12.5 MG, BID
     Route: 048
     Dates: start: 20100601
  7. ATORVASTATIN [Concomitant]
     Indication: PROPHYLAXIS
     Dosage: 20 MG, DAILY
     Route: 048
     Dates: start: 20100601

REACTIONS (1)
  - CARDIAC FAILURE CONGESTIVE [None]
